FAERS Safety Report 9752966 (Version 1)
Quarter: 2013Q4

REPORT INFORMATION
  Report Type: Spontaneous
  Country: US (occurrence: US)
  Receive Date: 20131213
  Receipt Date: 20131213
  Transmission Date: 20140711
  Serious: Yes (Hospitalization)
  Sender: FDA-Public Use
  Company Number: US-MALLINCKRODT-T201305067

PATIENT
  Age: 34 Year
  Sex: Male

DRUGS (10)
  1. ROXICODONE [Suspect]
     Indication: PRODUCT USED FOR UNKNOWN INDICATION
     Dosage: TWENTY, 10 MG TABLETS OVER 48 HOURS
     Route: 065
  2. ROXICODONE [Suspect]
     Dosage: 10 MG - 20 MG/DAY WHILE HOSPITALIZED
     Route: 065
  3. CYCLOSPORIN [Suspect]
     Indication: BONE MARROW TRANSPLANT
     Dosage: 50MG QAM, 25 MG QPM
  4. SERTRALINE [Suspect]
     Indication: PRODUCT USED FOR UNKNOWN INDICATION
     Dosage: 50 MG, QD
  5. METHYLPREDNISOLONE [Concomitant]
     Dosage: 42 MG, QOD
  6. ACYCLOVIR                          /00587301/ [Concomitant]
     Dosage: 400 MG, TID
  7. OMEPRAZOLE [Concomitant]
     Dosage: 20 MG, QD
  8. FOLINIC ACID [Concomitant]
     Dosage: 25 MG, QD
  9. FLUCONAZOLE [Concomitant]
     Dosage: 400 MG, QD
  10. TRIMETHOPRIM SULFAMETHOXAZOLE [Concomitant]
     Dosage: DOUBLE STRENGTH, BID
     Route: 048

REACTIONS (1)
  - Serotonin syndrome [Recovered/Resolved]
